FAERS Safety Report 5456378-3 (Version None)
Quarter: 2007Q3

REPORT INFORMATION
  Report Type: 
  Country: None (occurrence: None)
  Receive Date: 20070917
  Receipt Date: 20070917
  Transmission Date: 20080115
  Serious: No
  Sender: FDA-Public Use
  Company Number: None

PATIENT
  Sex: Female
  Weight: 121.564 kg

DRUGS (2)
  1. AMLODIPINE [Suspect]
     Indication: ARRHYTHMIA
  2. AMLODIPINE [Suspect]
     Indication: HYPERTENSION

REACTIONS (3)
  - DIZZINESS [None]
  - GASTRIC DISORDER [None]
  - PALPITATIONS [None]
